FAERS Safety Report 19705399 (Version 1)
Quarter: 2021Q3

REPORT INFORMATION
  Report Type: Spontaneous
  Country: US (occurrence: US)
  Receive Date: 20210816
  Receipt Date: 20210816
  Transmission Date: 20211014
  Serious: Yes (Other)
  Sender: FDA-Public Use
  Company Number: None

PATIENT

DRUGS (1)
  1. LUPRON [Suspect]
     Active Substance: LEUPROLIDE ACETATE

REACTIONS (6)
  - Weight decreased [None]
  - Arthralgia [None]
  - Eye disorder [None]
  - Asthenia [None]
  - Back pain [None]
  - Headache [None]
